FAERS Safety Report 6253255-5 (Version None)
Quarter: 2009Q3

REPORT INFORMATION
  Report Type: 
  Country: None (occurrence: None)
  Receive Date: 20090701
  Receipt Date: 20090623
  Transmission Date: 20100115
  Serious: Yes (Hospitalization, Other)
  Sender: FDA-Public Use
  Company Number: US-AMGEN-TCS341750

PATIENT
  Sex: Female

DRUGS (2)
  1. ENBREL [Suspect]
     Indication: RHEUMATOID ARTHRITIS
     Route: 058
     Dates: start: 20000101
  2. METHOTREXATE [Suspect]
     Dates: start: 20000101

REACTIONS (11)
  - ANAEMIA [None]
  - ARTHRALGIA [None]
  - CHOLECYSTECTOMY [None]
  - COUGH [None]
  - DYSPNOEA [None]
  - HAEMORRHAGE [None]
  - HEPATIC CIRRHOSIS [None]
  - HIP FRACTURE [None]
  - INJECTION SITE HAEMORRHAGE [None]
  - LUNG DISORDER [None]
  - OSTEOPOROSIS [None]
